FAERS Safety Report 6784522-4 (Version None)
Quarter: 2010Q2

REPORT INFORMATION
  Report Type: 
  Country: None (occurrence: None)
  Receive Date: 20100622
  Receipt Date: 20100610
  Transmission Date: 20101027
  Serious: Yes (Hospitalization, Other)
  Sender: FDA-Public Use
  Company Number: JP-ROCHE-638581

PATIENT
  Sex: Female
  Weight: 42 kg

DRUGS (14)
  1. TOCILIZUMAB [Suspect]
     Indication: RHEUMATOID ARTHRITIS
     Route: 041
     Dates: start: 20081110, end: 20081110
  2. TOCILIZUMAB [Suspect]
     Route: 041
     Dates: start: 20081208, end: 20081208
  3. TOCILIZUMAB [Suspect]
     Route: 041
     Dates: start: 20080121, end: 20080121
  4. TOCILIZUMAB [Suspect]
     Route: 041
     Dates: start: 20090224, end: 20090224
  5. TOCILIZUMAB [Suspect]
     Route: 041
     Dates: start: 20090316, end: 20090316
  6. PREDONINE [Concomitant]
     Route: 048
     Dates: start: 20081023, end: 20090219
  7. PREDONINE [Concomitant]
     Route: 048
     Dates: start: 20090220, end: 20090316
  8. PREDONINE [Concomitant]
     Route: 048
     Dates: start: 20090512, end: 20090518
  9. DIART [Concomitant]
     Route: 048
     Dates: end: 20090413
  10. LASIX [Concomitant]
     Dosage: FORM: PERORAL AGENT
     Route: 048
     Dates: end: 20090413
  11. AMLODIN [Concomitant]
     Route: 048
     Dates: end: 20090413
  12. FAMOTIDINE [Concomitant]
     Route: 048
     Dates: end: 20090413
  13. KREMEZIN [Concomitant]
     Dosage: FORM: MINUTE GRAIN
     Route: 048
     Dates: end: 20090413
  14. LAC-B [Concomitant]
     Dosage: FORM: POWDERED MEDICINE
     Route: 048
     Dates: end: 20090413

REACTIONS (2)
  - PNEUMONIA [None]
  - RENAL FAILURE [None]
